FAERS Safety Report 17035160 (Version 1)
Quarter: 2019Q4

REPORT INFORMATION
  Report Type: Spontaneous
  Country: BG (occurrence: BG)
  Receive Date: 20191115
  Receipt Date: 20191115
  Transmission Date: 20200122
  Serious: Yes (Other)
  Sender: FDA-Public Use
  Company Number: BG-009507513-1911BGR004028

PATIENT
  Age: 45 Year
  Sex: Female

DRUGS (1)
  1. KEYTRUDA [Suspect]
     Active Substance: PEMBROLIZUMAB
     Indication: NODULAR MELANOMA
     Dosage: UNK
     Dates: start: 201808

REACTIONS (2)
  - Tumour pseudoprogression [Unknown]
  - Vitiligo [Unknown]

NARRATIVE: CASE EVENT DATE: 2019
